FAERS Safety Report 6394006-3 (Version None)
Quarter: 2009Q4

REPORT INFORMATION
  Report Type: 
  Country: None (occurrence: None)
  Receive Date: 20091008
  Receipt Date: 20090924
  Transmission Date: 20100525
  Serious: Yes (Other)
  Sender: FDA-Public Use
  Company Number: PHHY2009IT41608

PATIENT
  Sex: Female

DRUGS (4)
  1. VALPRESSION [Suspect]
     Indication: HYPERTENSIVE HEART DISEASE
     Dosage: 80 MG DAILY
     Route: 048
     Dates: start: 20090101, end: 20090624
  2. MODURETIC 5-50 [Suspect]
     Indication: HYPERTENSIVE HEART DISEASE
     Dosage: 5/50 MG DAILY
     Route: 048
     Dates: start: 20090617, end: 20090624
  3. SOTALEX [Concomitant]
     Indication: HYPERTENSIVE HEART DISEASE
     Dosage: 40 MG DAILY
     Route: 048
  4. CARDIRENE [Concomitant]
     Indication: HYPERTENSIVE HEART DISEASE
     Dosage: 160 MG DAILY
     Route: 048

REACTIONS (2)
  - ALTERED STATE OF CONSCIOUSNESS [None]
  - HYPOTENSION [None]
